FAERS Safety Report 8340797-1 (Version None)
Quarter: 2012Q2

REPORT INFORMATION
  Report Type: 
  Country: None (occurrence: None)
  Receive Date: 20120507
  Receipt Date: 20120501
  Transmission Date: 20120825
  Serious: No
  Sender: FDA-Public Use
  Company Number: US-BIOGENIDEC-2012BI015635

PATIENT
  Age: 44 Year
  Sex: Female

DRUGS (3)
  1. MAXALT [Concomitant]
     Indication: PREMEDICATION
  2. AVONEX [Suspect]
     Indication: MULTIPLE SCLEROSIS
     Route: 030
     Dates: start: 20090824
  3. BENADRYL [Concomitant]
     Indication: PREMEDICATION

REACTIONS (5)
  - SOMNOLENCE [None]
  - MIGRAINE [None]
  - INJURY ASSOCIATED WITH DEVICE [None]
  - NAIL DISCOLOURATION [None]
  - PYREXIA [None]
